FAERS Safety Report 15311328 (Version 1)
Quarter: 2018Q3

REPORT INFORMATION
  Report Type: Spontaneous
  Country: US (occurrence: US)
  Receive Date: 20180814
  Receipt Date: 20180814
  Transmission Date: 20181010
  Serious: Yes (Disabling)
  Sender: FDA-Public Use
  Company Number: None

PATIENT
  Age: 50 Year
  Sex: Male
  Weight: 82.35 kg

DRUGS (7)
  1. TAMOXIFEN [Concomitant]
     Active Substance: TAMOXIFEN
  2. OTC MULTIVITAMIN [Concomitant]
  3. XANAX [Concomitant]
     Active Substance: ALPRAZOLAM
  4. VITAMIN D3 [Concomitant]
     Active Substance: CHOLECALCIFEROL
  5. COREG [Concomitant]
     Active Substance: CARVEDILOL
  6. MEDROL [Suspect]
     Active Substance: METHYLPREDNISOLONE
     Indication: MUSCLE STRAIN
     Dosage: ?          OTHER FREQUENCY:STEPDOWN DOSE;?
     Route: 048
     Dates: start: 20180629, end: 20180704
  7. MEDROL [Suspect]
     Active Substance: METHYLPREDNISOLONE
     Indication: COSTOCHONDRITIS
     Dosage: ?          OTHER FREQUENCY:STEPDOWN DOSE;?
     Route: 048
     Dates: start: 20180629, end: 20180704

REACTIONS (14)
  - Pyrexia [None]
  - Sinus disorder [None]
  - Tremor [None]
  - Somnolence [None]
  - Insomnia [None]
  - Hot flush [None]
  - Inflammation [None]
  - Depression [None]
  - Nausea [None]
  - Tinnitus [None]
  - Anxiety [None]
  - Stiff leg syndrome [None]
  - Fatigue [None]
  - Disturbance in attention [None]

NARRATIVE: CASE EVENT DATE: 20180708
